FAERS Safety Report 9165498 (Version 1)
Quarter: 2013Q1

REPORT INFORMATION
  Report Type: Spontaneous
  Country: US (occurrence: None)
  Receive Date: 20130314
  Receipt Date: 20130314
  Transmission Date: 20140127
  Serious: No
  Sender: FDA-Public Use
  Company Number: None

PATIENT
  Age: 35 Year
  Sex: Male

DRUGS (5)
  1. PROMACTA [Suspect]
     Indication: EVANS SYNDROME
     Route: 048
     Dates: start: 20130126
  2. PROMACTA [Suspect]
     Indication: THROMBOCYTOPENIA
     Route: 048
     Dates: start: 20130126
  3. OMEPRAZOLE [Concomitant]
  4. LORAZEPAM [Concomitant]
  5. NORCO [Concomitant]

REACTIONS (1)
  - Liver function test abnormal [None]
